FAERS Safety Report 6149012-0 (Version None)
Quarter: 2009Q2

REPORT INFORMATION
  Report Type: 
  Country: None (occurrence: None)
  Receive Date: 20090407
  Receipt Date: 20090327
  Transmission Date: 20091009
  Serious: Yes (Other)
  Sender: FDA-Public Use
  Company Number: TPA2009A00512

PATIENT
  Age: 6 Decade
  Sex: Male

DRUGS (3)
  1. ACTOPLUS MET [Suspect]
     Indication: TYPE 2 DIABETES MELLITUS
     Dosage: 15/500MG, BID, PER ORAL
     Route: 048
  2. CADUET [Suspect]
     Indication: HYPERTENSION
  3. TRICOR [Concomitant]

REACTIONS (2)
  - MYOSITIS [None]
  - RHABDOMYOLYSIS [None]
